FAERS Safety Report 17252589 (Version 1)
Quarter: 2020Q1

REPORT INFORMATION
  Report Type: Spontaneous
  Country: CA (occurrence: US)
  Receive Date: 20200108
  Receipt Date: 20200108
  Transmission Date: 20200409
  Serious: Yes (Other)
  Sender: FDA-Public Use
  Company Number: None

PATIENT
  Age: 75 Year
  Sex: Male
  Weight: 56.8 kg

DRUGS (1)
  1. PROLIA [Suspect]
     Active Substance: DENOSUMAB
     Indication: OSTEOPOROSIS
     Dosage: DOSE OF AMOUNT: 1 DF
     Route: 058
     Dates: start: 20191211, end: 20191212

REACTIONS (2)
  - Post procedural complication [None]
  - Rash [None]

NARRATIVE: CASE EVENT DATE: 20200108
